FAERS Safety Report 18058428 (Version 3)
Quarter: 2020Q3

REPORT INFORMATION
  Report Type: Spontaneous
  Country: DE (occurrence: DE)
  Receive Date: 20200723
  Receipt Date: 20200902
  Transmission Date: 20201103
  Serious: Yes (Life-Threatening, Hospitalization, Other)
  Sender: FDA-Public Use
  Company Number: DE-AUROBINDO-AUR-APL-2020-035991

PATIENT
  Age: 68 Year
  Sex: Male
  Weight: 77 kg

DRUGS (22)
  1. SIMVASTATIN FILM?COATED TABLETS 40MG [Interacting]
     Active Substance: SIMVASTATIN
     Indication: DIABETES MELLITUS
     Dosage: 10 MILLIGRAM, ONCE A DAY
     Route: 065
     Dates: start: 201808
  2. ELIQUIS [Interacting]
     Active Substance: APIXABAN
     Indication: CEREBROVASCULAR ACCIDENT PROPHYLAXIS
  3. MILGAMMA PROTEKT [Interacting]
     Active Substance: BENFOTIAMINE
     Indication: CEREBROVASCULAR ACCIDENT PROPHYLAXIS
  4. RAMIPRIL TABLETS 5MG [Interacting]
     Active Substance: RAMIPRIL
     Indication: HYPERTENSION
     Dosage: 5 MILLIGRAM, TWO TIMES A DAY(1?0?1)
     Route: 065
     Dates: start: 201808
  5. SIMVASTATIN FILM?COATED TABLETS 40MG [Interacting]
     Active Substance: SIMVASTATIN
     Indication: BLOOD CHOLESTEROL
     Dosage: 10 MILLIGRAM, ONCE A DAY
     Route: 065
  6. SIMVASTATIN FILM?COATED TABLETS 40MG [Interacting]
     Active Substance: SIMVASTATIN
     Dosage: 15 INTERNATIONAL UNIT, ONCE A DAY
     Route: 065
     Dates: start: 201808
  7. ALLOPURINOL 100 MG TABLETS [Interacting]
     Active Substance: ALLOPURINOL
     Indication: GOUT
     Dosage: 100 MILLIGRAM, ONCE A DAY
     Route: 065
     Dates: start: 201808
  8. SIMVASTATIN FILM?COATED TABLETS 40MG [Interacting]
     Active Substance: SIMVASTATIN
     Indication: CORONARY ARTERY DISEASE
     Dosage: 40 MILLIGRAM, ONCE A DAY(0?0?1)
     Route: 048
     Dates: start: 20110506
  9. SIMVASTATIN FILM?COATED TABLETS 40MG [Interacting]
     Active Substance: SIMVASTATIN
     Indication: HYPERTENSION
     Dosage: 40 MILLIGRAM, ONCE A DAY AT NIGHT (0?0?1)
     Route: 065
     Dates: start: 201808
  10. PROCORALAN [Interacting]
     Active Substance: IVABRADINE
     Indication: CARDIAC DISORDER
     Dosage: 7.5 MILLIGRAM, ONCE A DAY(1?0?0)
     Route: 065
     Dates: start: 201808
  11. MILGAMMA PROTEKT [Interacting]
     Active Substance: BENFOTIAMINE
     Indication: CARDIOVASCULAR DISORDER
     Dosage: 300 MILLIGRAM, ONCE A DAY(1)
     Route: 065
     Dates: start: 201808
  12. LEVETIRACETAM. [Concomitant]
     Active Substance: LEVETIRACETAM
     Indication: PRODUCT USED FOR UNKNOWN INDICATION
     Dosage: 2 DOSAGE FORM, ONCE A DAY, (1?0?1)
     Route: 065
  13. AVASTIN [Interacting]
     Active Substance: BEVACIZUMAB
     Indication: DIABETIC RETINAL OEDEMA
     Dosage: INJECT INTO THE RIGHT EYE AT 1.30 P.M.
     Route: 031
     Dates: start: 20200115
  14. ELIQUIS [Interacting]
     Active Substance: APIXABAN
     Indication: ATRIAL FIBRILLATION
     Dosage: 5 MILLIGRAM, TWO TIMES A DAY(1?0?1)
     Route: 065
     Dates: start: 201808
  15. AMLODIPINE [Suspect]
     Active Substance: AMLODIPINE BESYLATE
     Indication: HYPERTENSION
     Dosage: 5 MILLIGRAM, TWO TIMES A DAY(1?0?1)
     Route: 065
     Dates: start: 201808
  16. SIMVASTATIN FILM?COATED TABLETS 40MG [Interacting]
     Active Substance: SIMVASTATIN
     Dosage: 50 MILLIGRAM, ONCE A DAY
     Route: 065
     Dates: start: 201808
  17. INSULIN GLARGINE [Interacting]
     Active Substance: INSULIN GLARGINE
     Indication: DIABETES MELLITUS
     Dosage: 15 INTERNATIONAL UNIT, ONCE A DAY (EVENING)
     Route: 065
     Dates: start: 201808
  18. CARVEDILOL  FILM?COATED TABLETS 25 MG [Interacting]
     Active Substance: CARVEDILOL
     Indication: CARDIAC DISORDER
     Dosage: 25 MILLIGRAM, TWO TIMES A DAY(1?0?1)
     Route: 065
     Dates: start: 201808
  19. JANUMET [Interacting]
     Active Substance: METFORMIN HYDROCHLORIDE\SITAGLIPTIN PHOSPHATE
     Indication: DIABETES MELLITUS
     Dosage: 1 DOSAGE FORM, TWO TIMES A DAY((1?0?1))
     Route: 065
     Dates: start: 201808
  20. SPIRONOLACTON [Interacting]
     Active Substance: SPIRONOLACTONE
     Indication: CORONARY ARTERY DISEASE
     Dosage: 50 MILLIGRAM, ONCE A DAY(1?0?0)
     Route: 048
     Dates: start: 20110506
  21. SPIRONOLACTON [Interacting]
     Active Substance: SPIRONOLACTONE
     Indication: CARDIAC DISORDER
     Dosage: 50 MILLIGRAM, ONCE A DAY IN THE MORNING (1?0?0)
     Route: 065
     Dates: start: 201808
  22. TORASEMIDA [Interacting]
     Active Substance: TORSEMIDE
     Indication: RENAL DISORDER
     Dosage: 10 MILLIGRAM, ONCE A DAY IN THE MORNING (1?0?0)
     Route: 065
     Dates: start: 201808

REACTIONS (9)
  - Eye movement disorder [Recovered/Resolved]
  - Oculogyric crisis [Recovered/Resolved]
  - Off label use [Recovered/Resolved]
  - Seizure [Recovered/Resolved]
  - Movement disorder [Recovered/Resolved]
  - Drug interaction [Recovered/Resolved]
  - Status epilepticus [Recovering/Resolving]
  - Muscle spasms [Recovered/Resolved]
  - Product use issue [Recovered/Resolved]

NARRATIVE: CASE EVENT DATE: 201808
